FAERS Safety Report 16782493 (Version 1)
Quarter: 2019Q4

REPORT INFORMATION
  Report Type: Spontaneous
  Country: US (occurrence: US)
  Receive Date: 20190906
  Receipt Date: 20190906
  Transmission Date: 20200122
  Serious: No
  Sender: FDA-Public Use
  Company Number: None

PATIENT
  Age: 11 Year
  Sex: Female
  Weight: 60.75 kg

DRUGS (1)
  1. OXY VOLCANIC CLAY ACNE WASH [Suspect]
     Active Substance: SALICYLIC ACID
     Indication: ACNE
     Dosage: ?          QUANTITY:5 OUNCE(S);?
     Route: 061
     Dates: start: 20190813, end: 20190906

REACTIONS (2)
  - Application site pain [None]
  - Application site erythema [None]

NARRATIVE: CASE EVENT DATE: 20190906
